FAERS Safety Report 15458980 (Version 5)
Quarter: 2023Q2

REPORT INFORMATION
  Report Type: Spontaneous
  Country: PT (occurrence: PT)
  Receive Date: 20181003
  Receipt Date: 20230613
  Transmission Date: 20230722
  Serious: Yes (Life-Threatening, Other)
  Sender: FDA-Public Use
  Company Number: PHHY2018PT114048

PATIENT
  Age: 26 Year
  Sex: Male

DRUGS (20)
  1. CLOXAZOLAM [Suspect]
     Active Substance: CLOXAZOLAM
     Indication: Chronic hepatitis C
     Dosage: UNK (1 ML OF TRIAMCINOLONE 40 MG INJECTED )
     Route: 048
  2. CLOXAZOLAM [Suspect]
     Active Substance: CLOXAZOLAM
     Indication: HIV infection
  3. RISPERIDONE [Suspect]
     Active Substance: RISPERIDONE
     Indication: Chronic hepatitis C
     Dosage: UNK (1 ML OF TRIAMCINOLONE 40 MG INJECTED)
     Route: 048
  4. RISPERIDONE [Suspect]
     Active Substance: RISPERIDONE
     Indication: HIV infection
  5. OLANZAPINE [Suspect]
     Active Substance: OLANZAPINE
     Indication: Chronic hepatitis C
     Dosage: UNK (1 ML OF TRIAMCINOLONE 40 MG INJECTED)
     Route: 048
  6. OLANZAPINE [Suspect]
     Active Substance: OLANZAPINE
     Indication: HIV infection
  7. LOPINAVIR\RITONAVIR [Suspect]
     Active Substance: LOPINAVIR\RITONAVIR
     Indication: Chronic hepatitis C
     Dosage: UNK (1 ML OF TRIAMCINOLONE 40 MG INJECTED)
     Route: 048
  8. LOPINAVIR\RITONAVIR [Suspect]
     Active Substance: LOPINAVIR\RITONAVIR
     Indication: HIV infection
  9. TIAPRIDE [Suspect]
     Active Substance: TIAPRIDE
     Indication: Chronic hepatitis C
     Dosage: UNK (1 ML OF TRIAMCINOLONE 40 MG INJECTED)
     Route: 048
  10. TIAPRIDE [Suspect]
     Active Substance: TIAPRIDE
     Indication: HIV infection
  11. METHADONE HYDROCHLORIDE [Suspect]
     Active Substance: METHADONE HYDROCHLORIDE
     Indication: Chronic hepatitis C
     Dosage: UNK (1 ML OF TRIAMCINOLONE 40 MG INJECTED)
     Route: 048
  12. METHADONE HYDROCHLORIDE [Suspect]
     Active Substance: METHADONE HYDROCHLORIDE
     Indication: HIV infection
  13. STAVUDINE [Suspect]
     Active Substance: STAVUDINE
     Indication: HIV infection
     Dosage: UNK (1 ML OF TRIAMCINOLONE 40 MG INJECTED)
     Route: 048
  14. STAVUDINE [Suspect]
     Active Substance: STAVUDINE
     Indication: Chronic hepatitis C
  15. BIPERIDEN [Suspect]
     Active Substance: BIPERIDEN
     Indication: Chronic hepatitis C
     Dosage: UNK (1 ML OF TRIAMCINOLONE 40 MG INJECTED)
     Route: 065
  16. BIPERIDEN [Suspect]
     Active Substance: BIPERIDEN
     Indication: HIV infection
  17. CYAMEMAZINE [Suspect]
     Active Substance: CYAMEMAZINE
     Indication: Chronic hepatitis C
     Dosage: UNK (1 ML OF TRIAMCINOLONE 40 MG INJECTED)
     Route: 048
  18. CYAMEMAZINE [Suspect]
     Active Substance: CYAMEMAZINE
     Indication: HIV infection
  19. DIDANOSINE [Suspect]
     Active Substance: DIDANOSINE
     Indication: Chronic hepatitis C
     Dosage: UNK (1 ML OF TRIAMCINOLONE 40 MG INJECTED)
     Route: 048
  20. DIDANOSINE [Suspect]
     Active Substance: DIDANOSINE
     Indication: HIV infection

REACTIONS (3)
  - Hepatic fibrosis [Unknown]
  - Drug-induced liver injury [Recovered/Resolved]
  - Product use in unapproved indication [Unknown]
